FAERS Safety Report 9197552 (Version 2)
Quarter: 2013Q4

REPORT INFORMATION
  Report Type: Report from Study
  Country: JP (occurrence: JP)
  Receive Date: 20130328
  Receipt Date: 20131210
  Transmission Date: 20140711
  Serious: Yes (Hospitalization)
  Sender: FDA-Public Use
  Company Number: JP-GLAXOSMITHKLINE-B0877144A

PATIENT
  Age: 58 Year
  Sex: Female
  Weight: 47 kg

DRUGS (10)
  1. REVOLADE [Suspect]
     Indication: IMMUNE THROMBOCYTOPENIC PURPURA
     Route: 048
     Dates: start: 20120116, end: 20120129
  2. REVOLADE [Suspect]
     Indication: IMMUNE THROMBOCYTOPENIC PURPURA
     Route: 048
     Dates: start: 20120130, end: 20120212
  3. REVOLADE [Suspect]
     Indication: IMMUNE THROMBOCYTOPENIC PURPURA
     Route: 048
     Dates: start: 20120213, end: 20120712
  4. PREDONINE [Concomitant]
     Indication: IMMUNE THROMBOCYTOPENIC PURPURA
     Route: 048
  5. VOLTAREN [Concomitant]
     Route: 048
  6. MOHRUS TAPE [Concomitant]
     Route: 062
  7. TAKEPRON [Concomitant]
     Route: 048
  8. NU-LOTAN [Concomitant]
     Route: 048
  9. HOKUNALIN [Concomitant]
     Route: 062
  10. FERRUM [Concomitant]
     Route: 048

REACTIONS (1)
  - Cerebral infarction [Recovered/Resolved]
